FAERS Safety Report 10678615 (Version 1)
Quarter: 2014Q4

REPORT INFORMATION
  Report Type: Spontaneous
  Country: GB (occurrence: None)
  Receive Date: 20141223
  Receipt Date: 20141223
  Transmission Date: 20150529
  Serious: Yes (Other)
  Sender: FDA-Public Use
  Company Number: INT_00573_2014

PATIENT
  Age: 53 Year
  Sex: Male

DRUGS (1)
  1. CISPLATIN (CISPLATIN) (HQ SPECIALTY) [Suspect]
     Active Substance: CISPLATIN
     Indication: BLADDER CANCER
     Dosage: DF

REACTIONS (1)
  - Thrombosis [None]
